FAERS Safety Report 9349980 (Version 1)
Quarter: 2013Q2

REPORT INFORMATION
  Report Type: Report from Study
  Country: CA (occurrence: CA)
  Receive Date: 20130614
  Receipt Date: 20130614
  Transmission Date: 20140414
  Serious: Yes (Other)
  Sender: FDA-Public Use
  Company Number: PHHY2013CA060457

PATIENT
  Sex: Female

DRUGS (4)
  1. ACLASTA [Suspect]
     Indication: OSTEOPOROSIS
     Dosage: UNK
     Route: 042
     Dates: start: 20090428
  2. ACLASTA [Suspect]
     Dosage: UNK
     Route: 042
     Dates: start: 20100415
  3. ACLASTA [Suspect]
     Dosage: UNK
     Route: 042
     Dates: start: 20110419
  4. ACLASTA [Suspect]
     Dosage: UNK
     Route: 042
     Dates: start: 20120418

REACTIONS (1)
  - Blood creatinine decreased [Unknown]
